FAERS Safety Report 8386666-2 (Version None)
Quarter: 2012Q2

REPORT INFORMATION
  Report Type: 
  Country: None (occurrence: None)
  Receive Date: 20120525
  Receipt Date: 20120521
  Transmission Date: 20120825
  Serious: Yes (Death)
  Sender: FDA-Public Use
  Company Number: FR-PFIZER INC-2012080496

PATIENT
  Age: 54 Year
  Sex: Male
  Weight: 90 kg

DRUGS (5)
  1. SOMATROPIN [Suspect]
     Dosage: 0.8 MG, 1X/DAY
     Dates: start: 20020101
  2. HYDROCORTISONE [Concomitant]
     Indication: HYPOPITUITARISM
     Dosage: UNK
     Dates: start: 20010101
  3. ALPRAZOLAM [Concomitant]
     Indication: INSOMNIA
     Dosage: UNK
     Dates: start: 20010101
  4. TESTOSTERONE [Concomitant]
     Indication: HYPOPITUITARISM
     Dosage: UNK
     Dates: start: 20010101
  5. LEVOTHYROXINE SODIUM [Concomitant]
     Indication: HYPOPITUITARISM
     Dosage: UNK
     Dates: start: 20010101

REACTIONS (1)
  - PERITONITIS [None]
